FAERS Safety Report 6129824-X (Version None)
Quarter: 2009Q1

REPORT INFORMATION
  Report Type: 
  Country: None (occurrence: None)
  Receive Date: 20090324
  Receipt Date: 20090320
  Transmission Date: 20090719
  Serious: Yes (Hospitalization)
  Sender: FDA-Public Use
  Company Number: AU-ASTRAZENECA-2009AP02115

PATIENT
  Age: 25560 Day
  Sex: Female

DRUGS (1)
  1. TAMOXIFEN CITRATE [Suspect]
     Indication: BREAST CANCER IN SITU
     Route: 048

REACTIONS (3)
  - CERVICAL POLYP [None]
  - ENDOMETRIAL HYPERTROPHY [None]
  - OVARIAN CYST [None]
